FAERS Safety Report 8846492 (Version 1)
Quarter: 2012Q4

REPORT INFORMATION
  Report Type: 
  Country: US (occurrence: US)
  Receive Date: 20121017
  Receipt Date: 20121017
  Transmission Date: 20130627
  Serious: No
  Sender: FDA-Public Use
  Company Number: US-GLAXOSMITHKLINE-A0982885A

PATIENT
  Sex: Female

DRUGS (1)
  1. CEFTIN [Suspect]
     Route: 048
     Dates: start: 20120628

REACTIONS (1)
  - Pain in extremity [Not Recovered/Not Resolved]
